FAERS Safety Report 6173759-3 (Version None)
Quarter: 2009Q2

REPORT INFORMATION
  Report Type: 
  Country: None (occurrence: None)
  Receive Date: 20090430
  Receipt Date: 20090420
  Transmission Date: 20091009
  Serious: Yes (Hospitalization)
  Sender: FDA-Public Use
  Company Number: DE-AMGEN-STX343424

PATIENT
  Sex: Male
  Weight: 101 kg

DRUGS (5)
  1. MIMPARA [Suspect]
     Indication: HYPERPARATHYROIDISM SECONDARY
     Route: 048
     Dates: start: 20050304, end: 20070315
  2. CYCLOSPORINE [Concomitant]
     Route: 048
     Dates: start: 20080712
  3. UNSPECIFIED MEDICATION [Concomitant]
     Route: 048
     Dates: start: 20080712
  4. METOPROLOL TARTRATE [Concomitant]
     Dates: start: 20080712
  5. FLUVASTATIN [Concomitant]
     Dates: start: 20080712

REACTIONS (1)
  - RENAL CELL CARCINOMA [None]
